FAERS Safety Report 6228358-1 (Version None)
Quarter: 2009Q2

REPORT INFORMATION
  Report Type: 
  Country: None (occurrence: None)
  Receive Date: 20090610
  Receipt Date: 20090610
  Transmission Date: 20091009
  Serious: Yes (Death)
  Sender: FDA-Public Use
  Company Number: None

PATIENT
  Sex: Male

DRUGS (4)
  1. REVLIMID [Suspect]
     Indication: MULTIPLE MYELOMA
     Dosage: 15MG DAILY X 21 DAYS ORAL
     Route: 048
     Dates: start: 20070614, end: 20070627
  2. HALOPERIDAL [Concomitant]
  3. MORPHINE [Concomitant]
  4. LORAZEPAM [Concomitant]

REACTIONS (1)
  - TREATMENT NONCOMPLIANCE [None]
